FAERS Safety Report 14655857 (Version 1)
Quarter: 2018Q1

REPORT INFORMATION
  Report Type: Spontaneous
  Country: US (occurrence: US)
  Receive Date: 20180319
  Receipt Date: 20180319
  Transmission Date: 20180509
  Serious: Yes (Hospitalization)
  Sender: FDA-Public Use
  Company Number: US-PFIZER INC-2018110291

PATIENT
  Age: 82 Year
  Sex: Female
  Weight: 59.42 kg

DRUGS (1)
  1. LYRICA [Suspect]
     Active Substance: PREGABALIN
     Indication: FIBROMYALGIA
     Dosage: 75 MG, 2X/DAY
     Route: 048
     Dates: start: 2017, end: 201802

REACTIONS (9)
  - Oesophageal irritation [Unknown]
  - Vision blurred [Recovering/Resolving]
  - Fatigue [Unknown]
  - Condition aggravated [Recovering/Resolving]
  - Insomnia [Unknown]
  - Abdominal discomfort [Recovering/Resolving]
  - Vomiting [Recovered/Resolved]
  - Memory impairment [Unknown]
  - Red blood cell sedimentation rate increased [Unknown]

NARRATIVE: CASE EVENT DATE: 201801
